FAERS Safety Report 6024725-X (Version None)
Quarter: 2008Q4

REPORT INFORMATION
  Report Type: 
  Country: None (occurrence: None)
  Receive Date: 20081231
  Receipt Date: 20081219
  Transmission Date: 20090506
  Serious: Yes (Death, Life-Threatening, Hospitalization, Other)
  Sender: FDA-Public Use
  Company Number: AR-PFIZER INC-2008156386

PATIENT

DRUGS (7)
  1. DOCETAXEL [Suspect]
     Indication: BREAST CANCER
     Dosage: 110 MG, EVERY 3 WEEKS
     Route: 042
     Dates: start: 20081204, end: 20081204
  2. SUNITINIB MALATE [Suspect]
     Indication: BREAST CANCER
     Dosage: 37.5 MG, 1X/DAY
     Route: 048
     Dates: start: 20081205
  3. AMLODIPINE BESILATE [Concomitant]
     Indication: HYPERTENSION
     Dosage: 10 MG, 1X/DAY
     Dates: start: 20040101
  4. AMLODIPINE BESILATE [Concomitant]
     Dates: start: 20040101, end: 20081217
  5. LORAZEPAM [Concomitant]
     Indication: INSOMNIA
     Dosage: 2.5 MG, 1X/DAY
     Dates: start: 19980101
  6. LORAZEPAM [Concomitant]
     Dates: start: 19980101, end: 20081215
  7. METFORMIN HYDROCHLORIDE [Concomitant]
     Indication: DIABETES MELLITUS
     Dosage: 500 MG, 1X/DAY
     Dates: start: 20081204

REACTIONS (6)
  - ANAEMIA [None]
  - DISEASE PROGRESSION [None]
  - FALL [None]
  - HYPOKALAEMIA [None]
  - HYPOVOLAEMIC SHOCK [None]
  - PNEUMOTHORAX TRAUMATIC [None]
